FAERS Safety Report 4758705-9 (Version None)
Quarter: 2005Q3

REPORT INFORMATION
  Report Type: 
  Country: None (occurrence: None)
  Receive Date: 20050826
  Receipt Date: 20050729
  Transmission Date: 20060218
  Serious: Yes (Hospitalization)
  Sender: FDA-Public Use
  Company Number: 163-20785-05060417

PATIENT
  Age: 75 Year
  Sex: Female

DRUGS (11)
  1. THALOMID [Suspect]
     Indication: OVARIAN CANCER
     Dosage: 100 MG, DAILY, ORAL
     Route: 048
     Dates: start: 20020717, end: 20021201
  2. THALOMID [Suspect]
     Indication: OVARIAN CANCER
     Dosage: 100 MG, DAILY, ORAL
     Route: 048
     Dates: start: 20030101, end: 20030201
  3. THALOMID [Suspect]
     Indication: OVARIAN CANCER
     Dosage: 100 MG, DAILY, ORAL
     Route: 048
     Dates: start: 20020409
  4. THALOMID [Suspect]
     Indication: OVARIAN CANCER
     Dosage: 100 MG, DAILY, ORAL
     Route: 048
     Dates: start: 20020501
  5. THALOMID [Suspect]
     Indication: OVARIAN CANCER
     Dosage: 100 MG, DAILY, ORAL
     Route: 048
     Dates: start: 20040501
  6. HYDROCHLOROTHIAZIDE [Concomitant]
  7. PEPCID AC [Concomitant]
  8. ASPIRIN [Concomitant]
  9. K-DUR 10 [Concomitant]
  10. ACTONEL [Concomitant]
  11. PRAVACHOL [Concomitant]

REACTIONS (10)
  - AMNESIA [None]
  - APHASIA [None]
  - FATIGUE [None]
  - LUNG NEOPLASM [None]
  - LYMPHADENOPATHY [None]
  - NEUROPATHY PERIPHERAL [None]
  - NEUROTOXICITY [None]
  - SPLENIC LESION [None]
  - TUMOUR MARKER INCREASED [None]
  - VOLUME BLOOD DECREASED [None]
